FAERS Safety Report 8612431-4 (Version None)
Quarter: 2012Q3

REPORT INFORMATION
  Report Type: 
  Country: None (occurrence: None)
  Receive Date: 20120822
  Receipt Date: 20120820
  Transmission Date: 20120928
  Serious: Yes (Other)
  Sender: FDA-Public Use
  Company Number: DE-PFIZER INC-2012189350

PATIENT
  Age: 44 Year
  Sex: Female
  Weight: 70 kg

DRUGS (1)
  1. EPINEPHRINE [Suspect]
     Indication: HYPERSENSITIVITY
     Dosage: UNK

REACTIONS (6)
  - ACCIDENTAL EXPOSURE [None]
  - APPLICATION SITE DISCOLOURATION [None]
  - INJECTION SITE SWELLING [None]
  - APPLICATION SITE PAIN [None]
  - NEEDLE ISSUE [None]
  - APPLICATION SITE WARMTH [None]
